FAERS Safety Report 24652637 (Version 1)
Quarter: 2024Q4

REPORT INFORMATION
  Report Type: Spontaneous
  Country: US (occurrence: None)
  Receive Date: 20241122
  Receipt Date: 20241122
  Transmission Date: 20250115
  Serious: Yes (Other)
  Sender: Public
  Company Number: None

PATIENT
  Sex: Female

DRUGS (2)
  1. TERIPARATIDE [Suspect]
     Active Substance: TERIPARATIDE
     Indication: Osteoporosis
     Dosage: OTHER STRENGTH : 600 MCG/2.4ML;?OTHER QUANTITY : 20 MCG ;?FREQUENCY : DAILY;?
     Route: 058
     Dates: start: 20240531
  2. TERIPARATIDE [Suspect]
     Active Substance: TERIPARATIDE
     Indication: Osteoporotic fracture

REACTIONS (2)
  - Hospitalisation [None]
  - Therapy interrupted [None]
